FAERS Safety Report 22652761 (Version 1)
Quarter: 2023Q2

REPORT INFORMATION
  Report Type: Spontaneous
  Country: CA (occurrence: CA)
  Receive Date: 20230629
  Receipt Date: 20230629
  Transmission Date: 20230722
  Serious: Yes (Other)
  Sender: FDA-Public Use
  Company Number: CA-CELLTRION INC.-2023CA001392

PATIENT

DRUGS (5)
  1. INFLECTRA [Suspect]
     Active Substance: INFLIXIMAB-DYYB
     Indication: Colitis ulcerative
     Dosage: 5 MG/KG, INDUCTION AT 0,2,6 THEN EVERY 8 WEEKS
     Route: 042
     Dates: start: 20221222, end: 20230105
  2. INFLECTRA [Suspect]
     Active Substance: INFLIXIMAB-DYYB
     Dosage: 10 MG/KG, INDUCTION AT W6 THEN EVERY 8 WEEKS
     Route: 042
     Dates: start: 20230201, end: 20230201
  3. INFLECTRA [Suspect]
     Active Substance: INFLIXIMAB-DYYB
     Dosage: 10 MG/KG, INDUCTION AT W6 THEN EVERY 8 WEEKS
     Route: 042
     Dates: start: 20230330
  4. INFLECTRA [Suspect]
     Active Substance: INFLIXIMAB-DYYB
     Dosage: 10 MG/KG, INDUCTION AT W6 THEN EVERY 8 WEEKS (NOT COMPLETED)
     Route: 042
     Dates: start: 20230620
  5. DIPHENHYDRAMINE [Concomitant]
     Active Substance: DIPHENHYDRAMINE
     Indication: Premedication
     Dosage: UNK
     Dates: start: 20230201, end: 20230201

REACTIONS (6)
  - Dysphagia [Recovering/Resolving]
  - Food allergy [Recovering/Resolving]
  - Infusion related reaction [Recovering/Resolving]
  - Rash [Unknown]
  - Heart rate decreased [Not Recovered/Not Resolved]
  - Oesophagitis [Recovered/Resolved]

NARRATIVE: CASE EVENT DATE: 20230101
